FAERS Safety Report 24566461 (Version 1)
Quarter: 2024Q4

REPORT INFORMATION
  Report Type: Spontaneous
  Country: AU (occurrence: AU)
  Receive Date: 20241030
  Receipt Date: 20241030
  Transmission Date: 20250115
  Serious: Yes (Other)
  Sender: WAYLIS THERAPEUTICS
  Company Number: AU-WAYLIS-2024-AU-000385

PATIENT
  Age: 61 Year
  Sex: Female

DRUGS (4)
  1. RABEPRAZOLE SODIUM [Suspect]
     Active Substance: RABEPRAZOLE SODIUM
     Indication: Product used for unknown indication
     Dosage: 20.0 MILLIGRAM(S) (20 MILLIGRAM(S), 1 IN 1 DAY)
     Route: 048
  2. METHOTREXATE [Suspect]
     Active Substance: METHOTREXATE
     Dosage: 1.071 MILLIGRAM(S) (7.5 MILLIGRAM(S), 1 IN 1 WEEK)
  3. PREDNISOLONE [Suspect]
     Active Substance: PREDNISOLONE
     Dosage: 10.0 MILLIGRAM(S) (10 MILLIGRAM(S), 1 IN 1 DAY)
  4. TOCILIZUMAB [Suspect]
     Active Substance: TOCILIZUMAB
     Dosage: 23.14 MICROGRAM(S) (162 MICROGRAM(S), 1 IN 1 WEEK)
     Route: 058

REACTIONS (2)
  - Drug ineffective [Unknown]
  - Immunodeficiency [Unknown]
